FAERS Safety Report 13856340 (Version 3)
Quarter: 2018Q1

REPORT INFORMATION
  Report Type: Spontaneous
  Country: PE (occurrence: PE)
  Receive Date: 20170810
  Receipt Date: 20180330
  Transmission Date: 20180508
  Serious: Yes (Other)
  Sender: FDA-Public Use
  Company Number: PE-SA-2017SA144481

PATIENT
  Sex: Female
  Weight: 2.92 kg

DRUGS (2)
  1. GESTAVIT [Concomitant]
     Route: 064
     Dates: start: 201704
  2. MYOZYME [Suspect]
     Active Substance: ALGLUCOSIDASE ALFA
     Indication: GLYCOGEN STORAGE DISEASE TYPE II
     Route: 064

REACTIONS (4)
  - Nasopharyngitis [Recovered/Resolved]
  - Exposure via breast milk [Unknown]
  - Pyrexia [Recovered/Resolved]
  - Foetal cardiac disorder [Unknown]
